FAERS Safety Report 7379055-0 (Version None)
Quarter: 2011Q1

REPORT INFORMATION
  Report Type: 
  Country: None (occurrence: None)
  Receive Date: 20110328
  Receipt Date: 20110324
  Transmission Date: 20110831
  Serious: Yes (Other)
  Sender: FDA-Public Use
  Company Number: US-AMGEN-USASP2011016047

PATIENT
  Age: 72 Year
  Sex: Female

DRUGS (5)
  1. CALCIUM [Concomitant]
  2. VITAMIN A [Concomitant]
  3. VICODIN [Concomitant]
  4. PROLIA [Suspect]
     Indication: OSTEOPOROSIS POSTMENOPAUSAL
     Dates: start: 20101001
  5. GABAPENTIN [Concomitant]

REACTIONS (3)
  - LIGAMENT DISORDER [None]
  - MUSCLE SPASMS [None]
  - JOINT CREPITATION [None]
